FAERS Safety Report 15150023 (Version 4)
Quarter: 2018Q3

REPORT INFORMATION
  Report Type: Spontaneous
  Country: EG (occurrence: EG)
  Receive Date: 20180716
  Receipt Date: 20180730
  Transmission Date: 20181010
  Serious: Yes (Hospitalization)
  Sender: FDA-Public Use
  Company Number: EG-PFIZER INC-2018283006

PATIENT
  Age: 31 Year
  Sex: Male

DRUGS (2)
  1. EFFEXOR XR [Suspect]
     Active Substance: VENLAFAXINE HYDROCHLORIDE
     Indication: ANXIETY
     Dosage: 150 MG, DAILY
     Dates: start: 2015, end: 201801
  2. EFFEXOR XR [Suspect]
     Active Substance: VENLAFAXINE HYDROCHLORIDE
     Indication: STRESS

REACTIONS (2)
  - Bradycardia [Not Recovered/Not Resolved]
  - Depressed mood [Not Recovered/Not Resolved]
